FAERS Safety Report 4538601-2 (Version None)
Quarter: 2004Q4

REPORT INFORMATION
  Report Type: 
  Country: None (occurrence: None)
  Receive Date: 20041222
  Receipt Date: 20041214
  Transmission Date: 20050328
  Serious: Yes (Hospitalization, Other)
  Sender: FDA-Public Use
  Company Number: SEWYE285116DEC04

PATIENT
  Sex: Male

DRUGS (1)
  1. EFFEXOR [Suspect]
     Indication: DEPRESSION
     Dosage: 75 MG 1X PER 1 DAY ORAL
     Route: 064

REACTIONS (10)
  - AGITATION NEONATAL [None]
  - ASTHENIA [None]
  - DRUG EXPOSURE DURING PREGNANCY [None]
  - DRUG WITHDRAWAL SYNDROME NEONATAL [None]
  - HYPERBILIRUBINAEMIA NEONATAL [None]
  - IRRITABILITY [None]
  - MALNUTRITION [None]
  - NEONATAL DISORDER [None]
  - NEONATAL RESPIRATORY DEPRESSION [None]
  - PREMATURE BABY [None]
